FAERS Safety Report 9413022 (Version 3)
Quarter: 2013Q3

REPORT INFORMATION
  Report Type: Spontaneous
  Country: US (occurrence: US)
  Receive Date: 20130722
  Receipt Date: 20130827
  Transmission Date: 20140515
  Serious: Yes (Other)
  Sender: FDA-Public Use
  Company Number: US-GLAXOSMITHKLINE-A1034125A

PATIENT
  Age: 78 Year
  Sex: Female

DRUGS (1)
  1. ADVAIR [Suspect]
     Indication: PRODUCT USED FOR UNKNOWN INDICATION
     Dates: start: 20090804

REACTIONS (3)
  - Road traffic accident [Unknown]
  - Headache [Unknown]
  - Malaise [Unknown]
